FAERS Safety Report 19038737 (Version 1)
Quarter: 2021Q1

REPORT INFORMATION
  Report Type: Spontaneous
  Country: US (occurrence: US)
  Receive Date: 20210322
  Receipt Date: 20210322
  Transmission Date: 20210420
  Serious: Yes (Death)
  Sender: FDA-Public Use
  Company Number: US-BAYER-2021-104824

PATIENT
  Sex: Male

DRUGS (3)
  1. CELEBREX [Suspect]
     Active Substance: CELECOXIB
  2. ASPIRIN (CARDIO) [Suspect]
     Active Substance: ASPIRIN
  3. ELIQUIS [Interacting]
     Active Substance: APIXABAN

REACTIONS (2)
  - Labelled drug-drug interaction medication error [Fatal]
  - Medical device site haemorrhage [Fatal]

NARRATIVE: CASE EVENT DATE: 20210120
